FAERS Safety Report 12405133 (Version 1)
Quarter: 2016Q2

REPORT INFORMATION
  Report Type: Spontaneous
  Country: US (occurrence: US)
  Receive Date: 20160525
  Receipt Date: 20160525
  Transmission Date: 20160815
  Serious: No
  Sender: FDA-Public Use
  Company Number: US-ACTELION-A-US2016-136735

PATIENT
  Age: 57 Year
  Sex: Male

DRUGS (2)
  1. VALCHLOR [Suspect]
     Active Substance: MECHLORETHAMINE
     Indication: MYCOSIS FUNGOIDES
     Dosage: UNK UNK, QPM
     Route: 061
     Dates: start: 201511
  2. CLOBETASOL [Concomitant]
     Active Substance: CLOBETASOL
     Dosage: UNK, QAM

REACTIONS (3)
  - Alopecia [Recovering/Resolving]
  - Erythema [Recovered/Resolved]
  - Skin irritation [Recovered/Resolved]
